FAERS Safety Report 4578240-0 (Version None)
Quarter: 2005Q1

REPORT INFORMATION
  Report Type: 
  Country: None (occurrence: None)
  Receive Date: 20050209
  Receipt Date: 20050127
  Transmission Date: 20050727
  Serious: No
  Sender: FDA-Public Use
  Company Number: 2004115003

PATIENT
  Age: 50 Year
  Sex: Female
  Weight: 55.3388 kg

DRUGS (2)
  1. CLINDAMYCIN HYDROCHLORIDE [Suspect]
     Indication: PROPHYLAXIS
     Dosage: 600 MG (QD), ORAL
     Route: 048
     Dates: start: 20041013, end: 20041013
  2. IRON (IRON) [Concomitant]

REACTIONS (8)
  - BURNING SENSATION [None]
  - CHAPPED LIPS [None]
  - DIARRHOEA [None]
  - DISCOMFORT [None]
  - DRUG RESISTANCE [None]
  - LIP BLISTER [None]
  - LIP DISORDER [None]
  - LIP PAIN [None]
